FAERS Safety Report 20100590 (Version 22)
Quarter: 2025Q2

REPORT INFORMATION
  Report Type: Report from Study
  Country: US (occurrence: US)
  Receive Date: 20211123
  Receipt Date: 20250528
  Transmission Date: 20250716
  Serious: Yes (Other)
  Sender: TAKEDA
  Company Number: US-TAKEDA-US202034321

PATIENT
  Age: 61 Year
  Sex: Female
  Weight: 40 kg

DRUGS (41)
  1. TEDUGLUTIDE [Suspect]
     Active Substance: TEDUGLUTIDE
     Indication: Malnutrition
     Dosage: 0.22 MILLILITER, QD
  2. TEDUGLUTIDE [Suspect]
     Active Substance: TEDUGLUTIDE
     Indication: Short-bowel syndrome
     Dosage: 2.2 MILLIGRAM, QD
  3. TEDUGLUTIDE [Suspect]
     Active Substance: TEDUGLUTIDE
     Indication: Coeliac disease
     Dosage: 0.22 MILLILITER, QD
  4. TEDUGLUTIDE [Suspect]
     Active Substance: TEDUGLUTIDE
     Dosage: 0.22 MILLILITER, QD
  5. TEDUGLUTIDE [Suspect]
     Active Substance: TEDUGLUTIDE
     Dosage: 2.2 MILLILITER, QD
  6. TEDUGLUTIDE [Suspect]
     Active Substance: TEDUGLUTIDE
     Dosage: 0.22 MILLILITER, QD
  7. TEDUGLUTIDE [Suspect]
     Active Substance: TEDUGLUTIDE
     Dosage: 2.2 MILLIGRAM, QD
  8. TEDUGLUTIDE [Suspect]
     Active Substance: TEDUGLUTIDE
     Dosage: 2.2 MILLIGRAM, QD
  9. TEDUGLUTIDE [Suspect]
     Active Substance: TEDUGLUTIDE
     Dosage: 2.2 MILLIGRAM, QD
  10. TEDUGLUTIDE [Suspect]
     Active Substance: TEDUGLUTIDE
     Dosage: 2.2 MILLIGRAM, QD
  11. TEDUGLUTIDE [Suspect]
     Active Substance: TEDUGLUTIDE
     Dosage: 2.2 MILLIGRAM, QD
  12. TEDUGLUTIDE [Suspect]
     Active Substance: TEDUGLUTIDE
     Dosage: 2.2 MILLIGRAM, QD
  13. TEDUGLUTIDE [Suspect]
     Active Substance: TEDUGLUTIDE
     Dosage: 2.2 MILLIGRAM, QD
  14. ACTHAR [Suspect]
     Active Substance: CORTICOTROPIN
     Indication: Product used for unknown indication
  15. TPN [Concomitant]
     Active Substance: AMINO ACIDS\DEXTROSE\ELECTROLYTES NOS\SOYBEAN OIL
  16. PAXLOVID [Concomitant]
     Active Substance: NIRMATRELVIR\RITONAVIR
  17. FIORICET [Concomitant]
     Active Substance: ACETAMINOPHEN\BUTALBITAL\CAFFEINE
  18. VANCOMYCIN HYDROCHLORIDE [Concomitant]
     Active Substance: VANCOMYCIN HYDROCHLORIDE
  19. SALAGEN [Concomitant]
     Active Substance: PILOCARPINE HYDROCHLORIDE
  20. VENOFER [Concomitant]
     Active Substance: IRON SUCROSE
  21. XIFAXAN [Concomitant]
     Active Substance: RIFAXIMIN
  22. PENTASA [Concomitant]
     Active Substance: MESALAMINE
  23. ZENPEP [Concomitant]
     Active Substance: PANCRELIPASE AMYLASE\PANCRELIPASE LIPASE\PANCRELIPASE PROTEASE
  24. PROMETHAZINE HYDROCHLORIDE [Concomitant]
     Active Substance: PROMETHAZINE HYDROCHLORIDE
  25. PHENERGAN [Concomitant]
     Active Substance: PROMETHAZINE HYDROCHLORIDE
  26. SODIUM CHLORIDE [Concomitant]
     Active Substance: SODIUM CHLORIDE
  27. SUCRALFATE [Concomitant]
     Active Substance: SUCRALFATE
  28. SUCRALFATE [Concomitant]
     Active Substance: SUCRALFATE
  29. LINZESS [Concomitant]
     Active Substance: LINACLOTIDE
  30. DEXILANT [Concomitant]
     Active Substance: DEXLANSOPRAZOLE
  31. TOPAMAX [Concomitant]
     Active Substance: TOPIRAMATE
  32. PRILOSEC [Concomitant]
     Active Substance: OMEPRAZOLE MAGNESIUM
  33. FORTEO [Concomitant]
     Active Substance: TERIPARATIDE
  34. TYRVAYA [Concomitant]
     Active Substance: VARENICLINE TARTRATE
  35. UBRELVY [Concomitant]
     Active Substance: UBROGEPANT
  36. IRON [Concomitant]
     Active Substance: IRON
  37. INTRALIPID [Concomitant]
     Active Substance: EGG PHOSPHOLIPIDS\GLYCERIN\SOYBEAN OIL
  38. PROTONIX [Concomitant]
     Active Substance: PANTOPRAZOLE SODIUM
  39. MEGESTROL ACETATE [Concomitant]
     Active Substance: MEGESTROL ACETATE
  40. STELARA [Concomitant]
     Active Substance: USTEKINUMAB
  41. UNSPECIFIED INGREDIENT [Concomitant]
     Active Substance: UNSPECIFIED INGREDIENT

REACTIONS (37)
  - Drug hypersensitivity [Unknown]
  - Blindness unilateral [Unknown]
  - Ulcer haemorrhage [Not Recovered/Not Resolved]
  - Sepsis [Unknown]
  - Bacteraemia [Unknown]
  - Pneumonia [Unknown]
  - Terminal state [Unknown]
  - Seizure [Unknown]
  - Coeliac disease [Unknown]
  - Weight decreased [Not Recovered/Not Resolved]
  - Overgrowth bacterial [Not Recovered/Not Resolved]
  - Ischaemia [Not Recovered/Not Resolved]
  - Asthenia [Unknown]
  - Muscle atrophy [Unknown]
  - Malnutrition [Unknown]
  - Blood creatinine increased [Unknown]
  - Blood urea increased [Unknown]
  - Dehydration [Unknown]
  - Scar [Unknown]
  - Dysphonia [Unknown]
  - Gastrointestinal disorder [Unknown]
  - Thyroxine decreased [Unknown]
  - Urine output decreased [Unknown]
  - Product use issue [Unknown]
  - Product dose omission issue [Unknown]
  - Product use in unapproved indication [Unknown]
  - Haematocrit decreased [Unknown]
  - Fatigue [Unknown]
  - Pancreatic disorder [Unknown]
  - Bone density decreased [Unknown]
  - Osteoporosis [Unknown]
  - Renal disorder [Unknown]
  - Blood phosphorus decreased [Unknown]
  - Post procedural complication [Unknown]
  - Appetite disorder [Unknown]
  - Vomiting [Unknown]
  - Illness [Unknown]

NARRATIVE: CASE EVENT DATE: 20231120
